FAERS Safety Report 5466851-X (Version None)
Quarter: 2007Q3

REPORT INFORMATION
  Report Type: 
  Country: None (occurrence: None)
  Receive Date: 20070920
  Receipt Date: 20070910
  Transmission Date: 20080115
  Serious: Yes (Death, Hospitalization)
  Sender: FDA-Public Use
  Company Number: 2007-02197

PATIENT
  Age: 68 Year
  Sex: Male
  Weight: 75 kg

DRUGS (4)
  1. VELCADE [Suspect]
     Indication: B-CELL LYMPHOMA
     Dosage: 2.90 MG, INTRAVENOUS; 2.70 MG, INTRAVENOUS
     Route: 042
     Dates: start: 20070105, end: 20070524
  2. VELCADE [Suspect]
     Indication: B-CELL LYMPHOMA
     Dosage: 2.90 MG, INTRAVENOUS; 2.70 MG, INTRAVENOUS
     Route: 042
     Dates: end: 20070524
  3. METHYLPREDNISOLONE [Concomitant]
  4. FLUCONAZOLE [Concomitant]

REACTIONS (10)
  - CHOLECYSTITIS [None]
  - COAGULATION FACTOR V LEVEL DECREASED [None]
  - COAGULOPATHY [None]
  - CYTOMEGALOVIRUS INFECTION [None]
  - DRUG INEFFECTIVE [None]
  - ESCHERICHIA SEPSIS [None]
  - HEPATIC FAILURE [None]
  - HISTIOCYTOSIS HAEMATOPHAGIC [None]
  - HYPERCOAGULATION [None]
  - PSEUDOMONAS INFECTION [None]
